FAERS Safety Report 4767127-6 (Version None)
Quarter: 2005Q3

REPORT INFORMATION
  Report Type: 
  Country: None (occurrence: None)
  Receive Date: 20050909
  Receipt Date: 20050825
  Transmission Date: 20060218
  Serious: Yes (Other)
  Sender: FDA-Public Use
  Company Number: 197281

PATIENT
  Age: 57 Year
  Sex: Female

DRUGS (1)
  1. AVONEX [Suspect]
     Indication: MULTIPLE SCLEROSIS
     Dosage: 30 UG; QW; IM
     Route: 030
     Dates: start: 20000514, end: 20031001

REACTIONS (10)
  - CARDIAC DISORDER [None]
  - CHEST DISCOMFORT [None]
  - CYSTITIS [None]
  - DEPRESSION [None]
  - DYSPNOEA [None]
  - ECHOCARDIOGRAM ABNORMAL [None]
  - HEART RATE IRREGULAR [None]
  - INFLUENZA LIKE ILLNESS [None]
  - SUPRAVENTRICULAR EXTRASYSTOLES [None]
  - VISUAL DISTURBANCE [None]
